FAERS Safety Report 8299331-7 (Version None)
Quarter: 2012Q2

REPORT INFORMATION
  Report Type: 
  Country: None (occurrence: None)
  Receive Date: 20120416
  Receipt Date: 20120416
  Transmission Date: 20120825
  Serious: No
  Sender: FDA-Public Use
  Company Number: None

PATIENT
  Age: 21 Year
  Sex: Female

DRUGS (2)
  1. METFORMIN HCL [Suspect]
     Dates: start: 20080801, end: 20080820
  2. AVIANE-21 [Suspect]
     Dates: start: 20080611, end: 20080826

REACTIONS (6)
  - LIVER DISORDER [None]
  - CHROMATURIA [None]
  - WEIGHT DECREASED [None]
  - LIVER FUNCTION TEST ABNORMAL [None]
  - BLOOD BILIRUBIN INCREASED [None]
  - PRURITUS [None]
